FAERS Safety Report 24823881 (Version 1)
Quarter: 2025Q1

REPORT INFORMATION
  Report Type: Spontaneous
  Country: TH (occurrence: TH)
  Receive Date: 20250109
  Receipt Date: 20250109
  Transmission Date: 20250409
  Serious: No
  Sender: ALKEM
  Company Number: TH-ALKEM LABORATORIES LIMITED-TH-ALKEM-2024-04782

PATIENT
  Age: 11 Year
  Sex: Female

DRUGS (4)
  1. DEFERASIROX [Suspect]
     Active Substance: DEFERASIROX
     Indication: Haemoglobin E-thalassaemia disease
     Dosage: 38 MILLIGRAM/KILOGRAM, QD
     Route: 065
  2. DEFERASIROX [Suspect]
     Active Substance: DEFERASIROX
     Dosage: 33 MILLIGRAM/KILOGRAM, QD (REDUCED DOSE)
     Route: 065
  3. DEFERASIROX [Suspect]
     Active Substance: DEFERASIROX
     Dosage: 38.2 MILLIGRAM/KILOGRAM, QD
     Route: 065
  4. DEFERASIROX [Suspect]
     Active Substance: DEFERASIROX
     Dosage: 28.7 MILLIGRAM/KILOGRAM, QD (REDUCED DOSE)
     Route: 065

REACTIONS (1)
  - Proteinuria [Recovered/Resolved]
